FAERS Safety Report 13826291 (Version 1)
Quarter: 2017Q3

REPORT INFORMATION
  Report Type: Spontaneous
  Country: FR (occurrence: FR)
  Receive Date: 20170802
  Receipt Date: 20170802
  Transmission Date: 20171127
  Serious: Yes (Hospitalization, Other)
  Sender: FDA-Public Use
  Company Number: FR-SA-2017SA135806

PATIENT
  Age: 73 Year
  Sex: Male
  Weight: 83 kg

DRUGS (19)
  1. AMLODIPINE [Concomitant]
     Active Substance: AMLODIPINE BESYLATE
     Route: 048
  2. FUROSEMIDE. [Concomitant]
     Active Substance: FUROSEMIDE
     Indication: CARDIAC FAILURE
     Dosage: INTRAVENOUS ROUTE VIA INFUSION PUMP
     Route: 042
     Dates: start: 20170615, end: 20170618
  3. NOVOLIN TORONTO [Concomitant]
     Dosage: 8 IU IN THE MORNING AND 10 IU AT NOON AND IN THE EVENING
     Route: 058
  4. RISORDAN [Concomitant]
     Active Substance: ISOSORBIDE DINITRATE
     Indication: ANGINA PECTORIS
     Route: 042
     Dates: start: 20170614
  5. CORTANCYL [Concomitant]
     Active Substance: PREDNISONE
     Route: 048
  6. ADVAGRAF [Concomitant]
     Active Substance: TACROLIMUS
     Route: 048
  7. HEPARIN SODIUM. [Concomitant]
     Active Substance: HEPARIN SODIUM
     Indication: ATRIAL FIBRILLATION
     Route: 042
     Dates: start: 20170614, end: 20170616
  8. KARDEGIC [Suspect]
     Active Substance: ASPIRIN LYSINE
     Route: 048
  9. HUMALOG [Concomitant]
     Active Substance: INSULIN LISPRO
     Route: 058
  10. LANSOPRAZOLE. [Concomitant]
     Active Substance: LANSOPRAZOLE
     Route: 048
  11. FUROSEMIDE. [Concomitant]
     Active Substance: FUROSEMIDE
     Indication: OEDEMA PERIPHERAL
     Dosage: INTRAVENOUS ROUTE VIA INFUSION PUMP
     Route: 042
     Dates: start: 20170615, end: 20170618
  12. DOLIPRANE [Concomitant]
     Active Substance: ACETAMINOPHEN
     Dosage: THREE TIMES PER DAY IF NEEDED
     Route: 048
  13. BISOCE [Concomitant]
     Active Substance: BISOPROLOL
     Route: 048
  14. RISORDAN [Concomitant]
     Active Substance: ISOSORBIDE DINITRATE
     Indication: ANGINA PECTORIS
     Dosage: DECREASE DOSE
     Route: 042
     Dates: start: 20170617, end: 20170618
  15. CRESTOR [Concomitant]
     Active Substance: ROSUVASTATIN CALCIUM
     Route: 048
  16. FUROSEMIDE. [Concomitant]
     Active Substance: FUROSEMIDE
     Indication: CARDIAC FAILURE
     Route: 042
     Dates: start: 20170614, end: 20170615
  17. FUROSEMIDE. [Concomitant]
     Active Substance: FUROSEMIDE
     Indication: OEDEMA PERIPHERAL
     Route: 042
     Dates: start: 20170614, end: 20170615
  18. PLAVIX [Suspect]
     Active Substance: CLOPIDOGREL BISULFATE
     Route: 048
     Dates: start: 20170330, end: 20170619
  19. MIMPARA [Concomitant]
     Active Substance: CINACALCET HYDROCHLORIDE
     Indication: HYPERCALCAEMIA
     Route: 048
     Dates: start: 20170614

REACTIONS (7)
  - Chest pain [Recovered/Resolved]
  - Tachycardia [Recovered/Resolved]
  - Renal impairment [Recovering/Resolving]
  - Acute coronary syndrome [Recovered/Resolved]
  - Oedema peripheral [Recovered/Resolved]
  - Constipation [Unknown]
  - Atrial fibrillation [Recovered/Resolved]

NARRATIVE: CASE EVENT DATE: 20170614
